FAERS Safety Report 5091253-8 (Version None)
Quarter: 2006Q3

REPORT INFORMATION
  Report Type: 
  Country: None (occurrence: None)
  Receive Date: 20060727
  Receipt Date: 20060602
  Transmission Date: 20061208
  Serious: Yes (Other)
  Sender: FDA-Public Use
  Company Number: 2006062277

PATIENT
  Age: 83 Year
  Sex: Female
  Weight: 81.6475 kg

DRUGS (32)
  1. LYRICA [Suspect]
     Indication: ABDOMINAL PAIN UPPER
     Dosage: 150 MG (50 MG,3 IN 1 D)
     Dates: start: 20060301, end: 20060415
  2. LYRICA [Suspect]
     Indication: NAUSEA
     Dosage: 150 MG (50 MG,3 IN 1 D)
     Dates: start: 20060301, end: 20060415
  3. ASPIRIN [Concomitant]
  4. CALCIUM (CALCIUM) [Concomitant]
  5. CELEXA [Concomitant]
  6. COREG [Concomitant]
  7. VALSARTAN [Concomitant]
  8. FUROSEMIDE [Concomitant]
  9. HYDRALAZINE HCL [Concomitant]
  10. ISOSORBIDE (ISOSORBIDE) [Concomitant]
  11. LEVOTHYROXINE SODIUM [Concomitant]
  12. LORAZEPAM [Concomitant]
  13. NEXIUM [Concomitant]
  14. NIFEDIPINE [Concomitant]
  15. MULTIVITAMIN [Concomitant]
  16. POTASSIUM (POTASSIUM) [Concomitant]
  17. COMPAZINE [Concomitant]
  18. SENNA (SENNA) [Concomitant]
  19. VITAMIN D [Concomitant]
  20. ZOFRAN [Concomitant]
  21. HUMULIN N [Concomitant]
  22. LANTUS [Concomitant]
  23. CATAPRES [Concomitant]
  24. FENTANYL [Concomitant]
  25. NITROGLYCERIN [Concomitant]
  26. MIACALCIN [Concomitant]
  27. NITROGLYCERIN [Concomitant]
  28. ALL OTHER THERAPEUTIC PRODUCTS (ALL OTHER THERAPEUTIC PRODUCTS) [Concomitant]
  29. CRANBERRY (VACCINIUM MACROCARPON) [Concomitant]
  30. ANALGESIC BALM (MENTHOL, METHYL SALICYLATE) [Concomitant]
  31. METAXALONE [Concomitant]
  32. AMBIEN [Concomitant]

REACTIONS (4)
  - ABDOMINAL PAIN UPPER [None]
  - DYSKINESIA [None]
  - MUSCLE TWITCHING [None]
  - NAUSEA [None]
